FAERS Safety Report 10189002 (Version 1)
Quarter: 2014Q2

REPORT INFORMATION
  Report Type: Spontaneous
  Country: US (occurrence: None)
  Receive Date: 20140521
  Receipt Date: 20140521
  Transmission Date: 20141212
  Serious: Yes (Other)
  Sender: FDA-Public Use
  Company Number: None

PATIENT
  Age: 32 Year
  Sex: Male
  Weight: 74.84 kg

DRUGS (1)
  1. CIPRO [Suspect]
     Indication: FOOD POISONING
     Dosage: 1 PILL
     Route: 048
     Dates: start: 20140422, end: 20140427

REACTIONS (1)
  - Arthropathy [None]
